FAERS Safety Report 5003741-0 (Version None)
Quarter: 2006Q2

REPORT INFORMATION
  Report Type: 
  Country: None (occurrence: None)
  Receive Date: 20060516
  Receipt Date: 20060215
  Transmission Date: 20061013
  Serious: Yes (Hospitalization)
  Sender: FDA-Public Use
  Company Number: US-MERCK-0602USA04462

PATIENT
  Age: 53 Year
  Sex: Male
  Weight: 80 kg

DRUGS (2)
  1. VIOXX [Suspect]
     Indication: BURSITIS
     Route: 048
     Dates: start: 20010326, end: 20011001
  2. PROCARDIA [Concomitant]
     Route: 065
     Dates: start: 19920101

REACTIONS (18)
  - AORTIC DISSECTION [None]
  - AORTIC RUPTURE [None]
  - AORTIC VALVE INCOMPETENCE [None]
  - BASILAR ARTERY OCCLUSION [None]
  - BLINDNESS [None]
  - CEREBROVASCULAR ACCIDENT [None]
  - DIABETES MELLITUS NON-INSULIN-DEPENDENT [None]
  - DIFFICULTY IN WALKING [None]
  - DISLOCATION OF STERNUM [None]
  - FALL [None]
  - HEADACHE [None]
  - MITRAL VALVE INCOMPETENCE [None]
  - NECK PAIN [None]
  - PALPITATIONS [None]
  - TRICUSPID VALVE INCOMPETENCE [None]
  - VENTRICULAR FIBRILLATION [None]
  - VENTRICULAR HYPERTROPHY [None]
  - VENTRICULAR TACHYCARDIA [None]
